FAERS Safety Report 16500967 (Version 2)
Quarter: 2019Q3

REPORT INFORMATION
  Report Type: Report from Study
  Country: US (occurrence: US)
  Receive Date: 20190701
  Receipt Date: 20190723
  Transmission Date: 20191004
  Serious: Yes (Other)
  Sender: FDA-Public Use
  Company Number: US-PFIZER INC-2019227458

PATIENT
  Age: 49 Year
  Sex: Female

DRUGS (1)
  1. IBRANCE [Suspect]
     Active Substance: PALBOCICLIB
     Indication: BREAST CANCER
     Dosage: 125 MG, CYCLIC (IBRANCE 125MG DAILY DAY 1-21 OF 28-DAY CYCLE.)
     Route: 048
     Dates: start: 20190515

REACTIONS (8)
  - Fatigue [Not Recovered/Not Resolved]
  - Arthralgia [Unknown]
  - Back pain [Recovered/Resolved]
  - Neutrophil count decreased [Unknown]
  - Neuropathy peripheral [Unknown]
  - Mood swings [Unknown]
  - White blood cell count decreased [Unknown]
  - Dyspnoea [Unknown]

NARRATIVE: CASE EVENT DATE: 2019
